FAERS Safety Report 25721981 (Version 1)
Quarter: 2025Q3

REPORT INFORMATION
  Report Type: Spontaneous
  Country: US (occurrence: None)
  Receive Date: 20250825
  Receipt Date: 20250825
  Transmission Date: 20251021
  Serious: Yes (Other)
  Sender: FDA-CTU
  Company Number: None

PATIENT
  Age: 24 Year
  Sex: Female
  Weight: 84.15 kg

DRUGS (12)
  1. QELBREE [Suspect]
     Active Substance: VILOXAZINE HYDROCHLORIDE
     Indication: Attention deficit hyperactivity disorder
     Dosage: FREQUENCY : DAILY;?
     Route: 048
     Dates: start: 20250803
  2. OMEGA 3 [Concomitant]
     Active Substance: CAPSAICIN
  3. MAGNESIUM [Concomitant]
     Active Substance: MAGNESIUM
  4. VITAMIN D [Concomitant]
     Active Substance: VITAMIN D NOS
  5. JWH-018 [Concomitant]
     Active Substance: JWH-018
  6. CoQ10 with PPL [Concomitant]
  7. VITAMIN B COMPLEX [Concomitant]
     Active Substance: CYANOCOBALAMIN\DEXPANTHENOL\NIACINAMIDE\PYRIDOXINE HYDROCHLORIDE\RIBOFLAVIN 5^-PHOSPHATE SODIUM\THIA
  8. Zinc supreme [Concomitant]
  9. Digestive enzyme, [Concomitant]
  10. PROBIOTICS NOS [Concomitant]
     Active Substance: PROBIOTICS NOS
  11. NAC [Concomitant]
  12. PYRIDOXINE HYDROCHLORIDE [Concomitant]
     Active Substance: PYRIDOXINE HYDROCHLORIDE

REACTIONS (10)
  - Suicidal ideation [None]
  - Migraine [None]
  - Drug withdrawal syndrome [None]
  - Fatigue [None]
  - Hypersomnia [None]
  - Near death experience [None]
  - Product complaint [None]
  - Amenorrhoea [None]
  - Inappropriate affect [None]
  - Asthenia [None]

NARRATIVE: CASE EVENT DATE: 20250823
